FAERS Safety Report 11573250 (Version 1)
Quarter: 2015Q3

REPORT INFORMATION
  Report Type: Spontaneous
  Country: US (occurrence: US)
  Receive Date: 20150916
  Receipt Date: 20150916
  Transmission Date: 20151125
  Serious: No
  Sender: FDA-Public Use
  Company Number: US-ELI_LILLY_AND_COMPANY-US200910007862

PATIENT
  Sex: Female

DRUGS (4)
  1. FORTEO [Suspect]
     Active Substance: TERIPARATIDE
     Dates: start: 200908
  2. POTASSIUM [Concomitant]
     Active Substance: POTASSIUM
  3. ENBREL [Concomitant]
     Active Substance: ETANERCEPT
     Indication: RHEUMATOID ARTHRITIS
  4. HUMIRA [Concomitant]
     Active Substance: ADALIMUMAB
     Indication: RHEUMATOID ARTHRITIS

REACTIONS (11)
  - Burning sensation [Recovered/Resolved]
  - Sleep disorder [Recovered/Resolved]
  - Hot flush [Not Recovered/Not Resolved]
  - Hyperhidrosis [Unknown]
  - Arthralgia [Unknown]
  - Stress [Unknown]
  - Dehydration [Unknown]
  - Dental caries [Unknown]
  - Drug dose omission [Unknown]
  - Dry mouth [Unknown]
  - Tooth repair [Unknown]

NARRATIVE: CASE EVENT DATE: 2002
